FAERS Safety Report 13625182 (Version 1)
Quarter: 2017Q2

REPORT INFORMATION
  Report Type: Spontaneous
  Country: FR (occurrence: FR)
  Receive Date: 20170608
  Receipt Date: 20170608
  Transmission Date: 20170830
  Serious: Yes (Hospitalization)
  Sender: FDA-Public Use
  Company Number: FR-ACCORD-052438

PATIENT
  Age: 49 Year
  Sex: Female

DRUGS (13)
  1. ALIMTA [Suspect]
     Active Substance: PEMETREXED DISODIUM
     Indication: LUNG ADENOCARCINOMA
     Dosage: STRENGTH: 500 MG.????STRENGTH: 500 MG
     Route: 042
     Dates: start: 201604, end: 20170320
  2. ENOXAPARIN [Concomitant]
     Active Substance: ENOXAPARIN
     Indication: THROMBOSIS PROPHYLAXIS
  3. ETOPOSIDE MYLAN [Suspect]
     Active Substance: ETOPOSIDE
     Indication: LUNG ADENOCARCINOMA
     Dosage: STRENGTH: 20 MG/ML
     Route: 042
     Dates: start: 20160609, end: 20160609
  4. PARAFFIN [Concomitant]
     Active Substance: PARAFFIN
  5. SOLUPRED [Concomitant]
     Active Substance: PREDNISOLONE
     Indication: LUNG ADENOCARCINOMA
  6. CARBOPLATINE HOSPIRA [Suspect]
     Active Substance: CARBOPLATIN
     Indication: LUNG ADENOCARCINOMA
     Dosage: STRENGTH: 10 MG/ML
     Route: 042
     Dates: start: 20170320, end: 20170320
  7. CISPLATINE ACCORD [Suspect]
     Active Substance: CISPLATIN
     Indication: LUNG ADENOCARCINOMA
     Dosage: STRENGTH: 1 MG/ML. IN APRIL AND MAY-2016
     Route: 042
     Dates: start: 201604, end: 2016
  8. EMEND [Concomitant]
     Active Substance: APREPITANT
     Indication: PROPHYLAXIS OF NAUSEA AND VOMITING
  9. METOCLOPRAMIDE. [Concomitant]
     Active Substance: METOCLOPRAMIDE
     Indication: PROPHYLAXIS OF NAUSEA AND VOMITING
  10. ZOPHREN [Concomitant]
     Active Substance: ONDANSETRON
     Indication: PROPHYLAXIS OF NAUSEA AND VOMITING
  11. PANTOPRAZOLE [Concomitant]
     Active Substance: PANTOPRAZOLE
     Indication: GASTRITIS PROPHYLAXIS
  12. FENTANYL. [Concomitant]
     Active Substance: FENTANYL
     Indication: PAIN
  13. MACROGOL/MACROGOL STEARATE [Concomitant]

REACTIONS (1)
  - Hepatic fibrosis [Not Recovered/Not Resolved]

NARRATIVE: CASE EVENT DATE: 20170424
